FAERS Safety Report 8265948-9 (Version None)
Quarter: 2012Q2

REPORT INFORMATION
  Report Type: 
  Country: None (occurrence: None)
  Receive Date: 20120406
  Receipt Date: 20120404
  Transmission Date: 20120825
  Serious: Yes (Other)
  Sender: FDA-Public Use
  Company Number: US-MERCK-1204USA00646

PATIENT
  Age: 71 Year
  Sex: Female

DRUGS (5)
  1. ALENDRONATE SODIUM [Suspect]
     Route: 048
     Dates: start: 20080101, end: 20090901
  2. BONIVA [Suspect]
     Route: 065
     Dates: start: 20070101, end: 20080501
  3. ALENDRONATE SODIUM [Suspect]
     Route: 048
     Dates: start: 20090101, end: 20100501
  4. FOSAMAX [Suspect]
     Route: 048
     Dates: start: 20080501, end: 20080801
  5. FOSAMAX [Suspect]
     Route: 048
     Dates: start: 20000101, end: 20061101

REACTIONS (2)
  - FEMUR FRACTURE [None]
  - LOW TURNOVER OSTEOPATHY [None]
